FAERS Safety Report 6734082-9 (Version None)
Quarter: 2010Q2

REPORT INFORMATION
  Report Type: 
  Country: None (occurrence: None)
  Receive Date: 20100520
  Receipt Date: 20100512
  Transmission Date: 20101027
  Serious: Yes (Other)
  Sender: FDA-Public Use
  Company Number: JP-MERCK-1005USA02090

PATIENT
  Age: 22 Month
  Sex: Male

DRUGS (6)
  1. HYDROCORTISONE [Suspect]
     Indication: B PRECURSOR TYPE ACUTE LEUKAEMIA
     Route: 065
  2. ASPARAGINASE (AS DRUG) [Concomitant]
     Route: 065
  3. METHOTREXATE [Concomitant]
     Route: 065
  4. PIRARUBICIN [Concomitant]
     Route: 065
  5. PREDNISOLONE [Concomitant]
     Route: 065
  6. VINCRISTINE SULFATE [Concomitant]
     Route: 065

REACTIONS (1)
  - FUNGAL INFECTION [None]
